FAERS Safety Report 8539900-X (Version None)
Quarter: 2012Q2

REPORT INFORMATION
  Report Type: 
  Country: None (occurrence: None)
  Receive Date: 20120412
  Receipt Date: 20090107
  Transmission Date: 20120825
  Serious: Yes (Other)
  Sender: FDA-Public Use
  Company Number: PHEH2004US03575

PATIENT
  Age: 67 Year
  Sex: Female

DRUGS (8)
  1. NAVEL BINE ^ASTA MEDICA^ (VINORELBINE DITARTRATE) [Concomitant]
  2. ARANESP [Concomitant]
  3. AREDIA [Suspect]
     Indication: BREAST CANCER
     Dosage: 90 MG, QMO, INTRAVENOUS
     Route: 042
     Dates: start: 20010101, end: 20020101
  4. ZOMETA [Suspect]
     Indication: BREAST CANCER
     Dosage: 4 MG 1 TIME PER MONTH, INTRAVENOUS
     Route: 042
     Dates: start: 20020101, end: 20030101
  5. OXYCONTIN [Concomitant]
  6. PAXIL [Concomitant]
  7. PEPCID [Concomitant]
  8. ACETAMINOPHEN [Concomitant]

REACTIONS (4)
  - OSTEONECROSIS [None]
  - INFECTION [None]
  - BONE DISORDER [None]
  - PAIN [None]
